FAERS Safety Report 24853979 (Version 1)
Quarter: 2025Q1

REPORT INFORMATION
  Report Type: Spontaneous
  Country: US (occurrence: US)
  Receive Date: 20250117
  Receipt Date: 20250117
  Transmission Date: 20250408
  Serious: Yes (Life-Threatening, Hospitalization, Other)
  Sender: Steriscience PTE
  Company Number: US-STERISCIENCE B.V.-2024-ST-001008

PATIENT
  Age: 29 Day

DRUGS (14)
  1. MIDAZOLAM [Suspect]
     Active Substance: MIDAZOLAM
     Indication: Status epilepticus
     Dosage: CONTINUOUS INFUSION OF 0.1 MILLIGRAM/KILOGRAM, QH
     Route: 065
  2. MIDAZOLAM [Suspect]
     Active Substance: MIDAZOLAM
     Dosage: 0.9 MILLIGRAM/KILOGRAM, QH, OVER 16 HOURS
     Route: 065
  3. PENTOBARBITAL [Suspect]
     Active Substance: PENTOBARBITAL
     Indication: Status epilepticus
     Dosage: 1 MILLIGRAM/KILOGRAM, QH
     Route: 065
  4. PENTOBARBITAL [Suspect]
     Active Substance: PENTOBARBITAL
     Dosage: 2 MILLIGRAM/KILOGRAM, QH
     Route: 065
  5. PENTOBARBITAL [Suspect]
     Active Substance: PENTOBARBITAL
     Route: 042
  6. KETAMINE [Suspect]
     Active Substance: KETAMINE
     Indication: Status epilepticus
     Route: 042
  7. KETAMINE [Suspect]
     Active Substance: KETAMINE
     Route: 065
  8. LORAZEPAM [Suspect]
     Active Substance: LORAZEPAM
     Indication: Status epilepticus
     Route: 065
  9. PHENOBARBITAL [Suspect]
     Active Substance: PHENOBARBITAL
     Indication: Status epilepticus
     Route: 042
  10. PHENOBARBITAL [Suspect]
     Active Substance: PHENOBARBITAL
     Route: 042
  11. PHENOBARBITAL [Suspect]
     Active Substance: PHENOBARBITAL
     Route: 042
  12. FOSPHENYTOIN [Suspect]
     Active Substance: FOSPHENYTOIN
     Indication: Status epilepticus
     Route: 065
  13. LEVETIRACETAM [Concomitant]
     Active Substance: LEVETIRACETAM
     Indication: Status epilepticus
     Route: 065
  14. LACOSAMIDE [Concomitant]
     Active Substance: LACOSAMIDE
     Indication: Status epilepticus
     Route: 065

REACTIONS (1)
  - Drug ineffective for unapproved indication [Unknown]
